FAERS Safety Report 6844010-3 (Version None)
Quarter: 2010Q3

REPORT INFORMATION
  Report Type: 
  Country: None (occurrence: None)
  Receive Date: 20100715
  Receipt Date: 20100706
  Transmission Date: 20110219
  Serious: Yes (Hospitalization)
  Sender: FDA-Public Use
  Company Number: TN-WATSON-2010-08891

PATIENT
  Age: 13 Year
  Sex: Female

DRUGS (3)
  1. FAMOTIDINE [Suspect]
     Indication: GASTRITIS
     Dosage: UNK
     Dates: start: 20040901
  2. ADALAT [Suspect]
     Indication: HYPERTENSION
     Dosage: UNK
     Dates: start: 20040901
  3. GARDENAL                           /00023201/ [Suspect]
     Indication: GRAND MAL CONVULSION
     Dosage: UNK
     Dates: start: 20040901

REACTIONS (3)
  - POLYNEUROPATHY [None]
  - PORPHYRIA ACUTE [None]
  - QUADRIPLEGIA [None]
